FAERS Safety Report 4415934-1 (Version None)
Quarter: 2004Q3

REPORT INFORMATION
  Report Type: 
  Country: None (occurrence: None)
  Receive Date: 20040805
  Receipt Date: 20040618
  Transmission Date: 20050211
  Serious: No
  Sender: FDA-Public Use
  Company Number: US-GLAXOSMITHKLINE-A0515229A

PATIENT
  Age: 56 Year
  Sex: Male

DRUGS (6)
  1. AVANDAMET [Suspect]
     Dosage: 3TAB PER DAY
     Route: 048
  2. STARLIX [Concomitant]
  3. LANTUS [Concomitant]
  4. ACTOS [Concomitant]
  5. NIASPAN [Concomitant]
  6. ALLOPURINOL [Concomitant]

REACTIONS (7)
  - BLOOD GLUCOSE ABNORMAL [None]
  - BURNING SENSATION [None]
  - DIARRHOEA [None]
  - DYSPNOEA [None]
  - PARAESTHESIA [None]
  - RENAL PAIN [None]
  - SOMNOLENCE [None]
